FAERS Safety Report 7495479-5 (Version None)
Quarter: 2011Q2

REPORT INFORMATION
  Report Type: 
  Country: None (occurrence: None)
  Receive Date: 20110523
  Receipt Date: 20110509
  Transmission Date: 20111010
  Serious: No
  Sender: FDA-Public Use
  Company Number: CN-JNJFOC-20110506050

PATIENT
  Age: 50 Year
  Sex: Male

DRUGS (3)
  1. DURAGESIC-100 [Suspect]
     Indication: PAIN
     Route: 062
     Dates: start: 20110509, end: 20110509
  2. DURAGESIC-100 [Suspect]
     Indication: BENIGN PANCREATIC NEOPLASM
     Route: 062
     Dates: start: 20110509, end: 20110509
  3. DURAGESIC-100 [Suspect]
     Indication: ABDOMINAL PAIN UPPER
     Route: 062
     Dates: start: 20110509, end: 20110509

REACTIONS (3)
  - CANCER PAIN [None]
  - INAPPROPRIATE SCHEDULE OF DRUG ADMINISTRATION [None]
  - DRUG PRESCRIBING ERROR [None]
